FAERS Safety Report 5710177-3 (Version None)
Quarter: 2008Q2

REPORT INFORMATION
  Report Type: 
  Country: None (occurrence: None)
  Receive Date: 20080418
  Receipt Date: 20080128
  Transmission Date: 20081010
  Serious: No
  Sender: FDA-Public Use
  Company Number: US-ASTRAZENECA-2008UW01940

PATIENT
  Age: 69 Year
  Sex: Male
  Weight: 79.4 kg

DRUGS (4)
  1. TOPROL-XL [Suspect]
     Indication: ATRIAL FIBRILLATION
     Route: 048
     Dates: start: 20071101, end: 20080119
  2. DIGOXIN [Concomitant]
  3. PLAVIX [Concomitant]
  4. ZETIA [Concomitant]

REACTIONS (8)
  - ALOPECIA [None]
  - COUGH [None]
  - DIZZINESS [None]
  - DYSPNOEA [None]
  - HALO VISION [None]
  - HYPOAESTHESIA [None]
  - INSOMNIA [None]
  - RASH [None]
